FAERS Safety Report 5926734-5 (Version None)
Quarter: 2008Q4

REPORT INFORMATION
  Report Type: 
  Country: None (occurrence: None)
  Receive Date: 20081022
  Receipt Date: 20081010
  Transmission Date: 20090506
  Serious: Yes (Other)
  Sender: FDA-Public Use
  Company Number: US-JNJFOC-20081003009

PATIENT
  Age: 13 Year
  Sex: Female
  Weight: 56.7 kg

DRUGS (3)
  1. TYLENOL COLD MULTI-SYMPTOM DAYTIME RAPID RELEASE [Suspect]
     Indication: NASOPHARYNGITIS
     Route: 048
  2. SINGULAIR [Concomitant]
     Indication: MULTIPLE ALLERGIES
  3. CLARITIN [Concomitant]
     Indication: MULTIPLE ALLERGIES

REACTIONS (2)
  - MALAISE [None]
  - PRODUCT COUNTERFEIT [None]
